FAERS Safety Report 5077453-1 (Version None)
Quarter: 2006Q3

REPORT INFORMATION
  Report Type: 
  Country: None (occurrence: None)
  Receive Date: 20060810
  Receipt Date: 20060302
  Transmission Date: 20061208
  Serious: No
  Sender: FDA-Public Use
  Company Number: US-GLAXOSMITHKLINE-A0595918A

PATIENT
  Age: 47 Year
  Sex: Female

DRUGS (15)
  1. PAXIL [Suspect]
     Indication: DEPRESSION
     Dosage: 30MG PER DAY
     Route: 048
  2. COPAXONE [Concomitant]
  3. NORCO [Concomitant]
  4. BACLOFEN [Concomitant]
  5. DANTRIUM [Concomitant]
  6. XANAX [Concomitant]
  7. NEURONTIN [Concomitant]
  8. DITROPAN XL [Concomitant]
  9. FAMOTIDINE [Concomitant]
  10. SONODOR [Concomitant]
  11. MUCINEX [Concomitant]
  12. MULTI-VITAMIN [Concomitant]
  13. B-6 [Concomitant]
  14. B12 [Concomitant]
  15. MUSCLE RELAXER [Concomitant]

REACTIONS (1)
  - DRUG INEFFECTIVE [None]
